FAERS Safety Report 6080001-0 (Version None)
Quarter: 2009Q1

REPORT INFORMATION
  Report Type: 
  Country: None (occurrence: None)
  Receive Date: 20090217
  Receipt Date: 20090113
  Transmission Date: 20090719
  Serious: No
  Sender: FDA-Public Use
  Company Number: A0763228A

PATIENT
  Age: 76 Year
  Sex: Male

DRUGS (5)
  1. COREG CR [Suspect]
     Dosage: 80MG PER DAY
     Route: 048
  2. RAMIPRIL [Concomitant]
  3. ADVICOR [Concomitant]
  4. ASPIRIN [Concomitant]
  5. VIAGRA [Concomitant]

REACTIONS (3)
  - BALANCE DISORDER [None]
  - HEART RATE DECREASED [None]
  - PRESYNCOPE [None]
